FAERS Safety Report 4528018-9 (Version None)
Quarter: 2004Q4

REPORT INFORMATION
  Report Type: 
  Country: None (occurrence: None)
  Receive Date: 20041215
  Receipt Date: 20040615
  Transmission Date: 20050328
  Serious: Yes (Death)
  Sender: FDA-Public Use
  Company Number: AR-ABBOTT-04P-007-0264231-01

PATIENT
  Sex: Male

DRUGS (7)
  1. RITONAVIR SOFT GELATIN CAPSULES [Suspect]
     Indication: HIV INFECTION
     Route: 048
     Dates: start: 20030827, end: 20040525
  2. TIPRANAVIR [Concomitant]
     Indication: HIV INFECTION
  3. PIRIMETAMINE [Concomitant]
     Indication: ANTIFUNGAL PROPHYLAXIS
     Route: 048
     Dates: start: 20031025, end: 20040525
  4. SULFADIAZINE [Concomitant]
     Indication: ANTIFUNGAL PROPHYLAXIS
     Route: 048
     Dates: start: 20031025, end: 20040525
  5. FOLINIC ACID [Concomitant]
     Indication: ANTIFUNGAL PROPHYLAXIS
     Route: 048
     Dates: start: 20031025, end: 20040525
  6. CLONAZEPAM [Concomitant]
     Indication: ANXIETY
     Route: 048
     Dates: start: 20040316, end: 20040525
  7. FERRUM [Concomitant]
     Indication: ANAEMIA
     Dosage: 7.5/300 MG
     Dates: start: 20040330, end: 20040525

REACTIONS (1)
  - DEATH [None]
